FAERS Safety Report 6747362-8 (Version None)
Quarter: 2010Q2

REPORT INFORMATION
  Report Type: 
  Country: None (occurrence: None)
  Receive Date: 20100528
  Receipt Date: 20100517
  Transmission Date: 20101027
  Serious: Yes (Other)
  Sender: FDA-Public Use
  Company Number: A0861809A

PATIENT
  Age: 52 Year
  Sex: Male

DRUGS (17)
  1. LAMIVUDINE-HIV [Suspect]
  2. ABACAVIR [Suspect]
  3. ZIDOVUDINE [Suspect]
  4. DELAVIRDINE [Suspect]
  5. EFAVIRENZ [Suspect]
     Route: 048
  6. STAVUDINE [Suspect]
  7. DIDANOSINE [Suspect]
  8. INDINAVIR [Suspect]
     Route: 048
  9. SAQUINAVIR [Suspect]
  10. TENOFOVIR [Suspect]
  11. ETRAVIRINE [Suspect]
  12. RALTEGRAVIR [Suspect]
  13. LOPINAVIR [Suspect]
  14. NELFINAVIR [Suspect]
  15. DARUNAVIR [Suspect]
  16. RITONAVIR [Suspect]
  17. NEVIRAPINE [Suspect]

REACTIONS (5)
  - DIPLOPIA [None]
  - EYELID PTOSIS [None]
  - LIPODYSTROPHY ACQUIRED [None]
  - MITOCHONDRIAL TOXICITY [None]
  - PROGRESSIVE EXTERNAL OPHTHALMOPLEGIA [None]
